FAERS Safety Report 14543457 (Version 3)
Quarter: 2018Q2

REPORT INFORMATION
  Report Type: Report from Study
  Country: US (occurrence: US)
  Receive Date: 20180216
  Receipt Date: 20180413
  Transmission Date: 20180711
  Serious: Yes (Hospitalization, Other)
  Sender: FDA-Public Use
  Company Number: US-TARO-2018TAR00115

PATIENT
  Age: 61 Year
  Sex: Female
  Weight: 46.26 kg

DRUGS (7)
  1. HUMULIN NOS [Concomitant]
     Active Substance: INSULIN HUMAN
     Dosage: 30 U, 2X/DAY
     Dates: start: 200806
  2. HYDROCHLOROTHIAZIDE. [Concomitant]
     Active Substance: HYDROCHLOROTHIAZIDE
     Dosage: 25 MG, 1X/DAY
     Route: 048
     Dates: start: 2009
  3. NAFTIN [Suspect]
     Active Substance: NAFTIFINE HYDROCHLORIDE
     Indication: TINEA PEDIS
     Dosage: 1 DOSAGE UNITS (APPLICATION), 1X/DAY
     Route: 061
     Dates: start: 20171220, end: 20180103
  4. BLINDED NAFTIFINE HCL GEL 2% [Suspect]
     Active Substance: NAFTIFINE HYDROCHLORIDE
     Indication: TINEA PEDIS
     Dosage: 1 DOSAGE UNITS (APPLICATION), 1X/DAY
     Route: 061
     Dates: start: 20171220, end: 20180103
  5. BENZONATATE. [Concomitant]
     Active Substance: BENZONATATE
     Dosage: 200 MG, AS NEEDED
     Route: 048
     Dates: start: 201602
  6. LISINOPRIL. [Concomitant]
     Active Substance: LISINOPRIL
     Dosage: 10 MG, 1X/DAY
     Route: 048
     Dates: start: 2009
  7. BLINDED PLACEBO [Suspect]
     Active Substance: INVESTIGATIONAL PRODUCT
     Indication: TINEA PEDIS
     Dosage: 1 DOSAGE UNITS (APPLICATION), 1X/DAY
     Route: 061
     Dates: start: 20171220, end: 20180103

REACTIONS (2)
  - Hip fracture [Recovering/Resolving]
  - Fall [Recovered/Resolved]

NARRATIVE: CASE EVENT DATE: 20180119
